FAERS Safety Report 10008023 (Version 1)
Quarter: 2014Q1

REPORT INFORMATION
  Report Type: Report from Study
  Country: CA (occurrence: CA)
  Receive Date: 20140313
  Receipt Date: 20140313
  Transmission Date: 20141002
  Serious: Yes (Hospitalization)
  Sender: FDA-Public Use
  Company Number: CA-JNJFOC-20140305364

PATIENT
  Age: 56 Year
  Sex: Female
  Weight: 79.3 kg

DRUGS (12)
  1. REMICADE [Suspect]
     Indication: COLITIS ULCERATIVE
     Route: 042
     Dates: start: 20131002
  2. ASACOL [Concomitant]
     Route: 065
  3. NEXIUM [Concomitant]
     Route: 065
  4. CODEINE [Concomitant]
     Route: 065
  5. ATIVAN [Concomitant]
     Route: 065
  6. CLOBETASOL [Concomitant]
     Route: 065
  7. DOVOBET [Concomitant]
     Route: 065
  8. PENTASA [Concomitant]
     Route: 065
  9. APO-AMILZIDE [Concomitant]
     Route: 065
  10. VITAMIN D [Concomitant]
     Route: 065
  11. PREMARIN [Concomitant]
     Route: 065
  12. MULTIVITAMINS [Concomitant]
     Route: 065

REACTIONS (2)
  - Appendicitis [Recovered/Resolved]
  - Drug effect decreased [Unknown]
